FAERS Safety Report 10219903 (Version 1)
Quarter: 2014Q2

REPORT INFORMATION
  Report Type: Spontaneous
  Country: TW (occurrence: TW)
  Receive Date: 20140605
  Receipt Date: 20140605
  Transmission Date: 20141212
  Serious: Yes (Hospitalization)
  Sender: FDA-Public Use
  Company Number: TW-BRISTOL-MYERS SQUIBB COMPANY-20882742

PATIENT
  Age: 57 Year
  Sex: Female

DRUGS (1)
  1. YERVOY [Suspect]
     Indication: MALIGNANT MELANOMA
     Dosage: LAST INFUSION WAS IN APRIL-2014
     Dates: start: 20140207

REACTIONS (2)
  - Pyrexia [Recovered/Resolved]
  - Asthenia [Unknown]
